FAERS Safety Report 9717370 (Version 1)
Quarter: 2013Q4

REPORT INFORMATION
  Report Type: Spontaneous
  Country: US (occurrence: US)
  Receive Date: 20131127
  Receipt Date: 20131127
  Transmission Date: 20140711
  Serious: No
  Sender: FDA-Public Use
  Company Number: US-PFIZER INC-2013336335

PATIENT
  Age: 42 Year
  Sex: Female
  Weight: 100 kg

DRUGS (1)
  1. XELJANZ [Suspect]
     Indication: RHEUMATOID ARTHRITIS
     Dosage: 5 MG, 2X/DAY
     Dates: start: 201310

REACTIONS (4)
  - Night sweats [Unknown]
  - Hyperhidrosis [Unknown]
  - Nightmare [Unknown]
  - Blood cholesterol increased [Unknown]
